FAERS Safety Report 7388228-2 (Version None)
Quarter: 2011Q2

REPORT INFORMATION
  Report Type: 
  Country: None (occurrence: None)
  Receive Date: 20110401
  Receipt Date: 20110218
  Transmission Date: 20111010
  Serious: Yes (Other)
  Sender: FDA-Public Use
  Company Number: AU-JNJFOC-20100800510

PATIENT
  Sex: Male
  Weight: 102 kg

DRUGS (10)
  1. SULFASALAZINE [Concomitant]
     Indication: CROHN'S DISEASE
  2. PERINDOPRIL [Concomitant]
  3. LIPITOR [Concomitant]
  4. MOBIC [Concomitant]
  5. PANADOL [Concomitant]
     Indication: HEADACHE
  6. STELARA [Suspect]
     Indication: PSORIASIS
     Dosage: 0.7 ML X 2 VIALS (0.5 MG = 45 MG)
     Route: 058
  7. MIRTAZAPINE [Concomitant]
     Indication: DEPRESSION
  8. TRAMADOL [Concomitant]
  9. STELARA [Suspect]
     Dosage: 0.7 ML X 2 VIALS (0.5 MG = 45 MG)
     Route: 058
  10. STELARA [Suspect]
     Route: 058

REACTIONS (8)
  - HEADACHE [None]
  - ARTHRALGIA [None]
  - SPINAL DISORDER [None]
  - INCORRECT DOSE ADMINISTERED [None]
  - PARAESTHESIA [None]
  - BLOOD PRESSURE INCREASED [None]
  - BLOOD GLUCOSE FLUCTUATION [None]
  - MALAISE [None]
